FAERS Safety Report 14167065 (Version 1)
Quarter: 2017Q4

REPORT INFORMATION
  Report Type: Spontaneous
  Country: FR (occurrence: FR)
  Receive Date: 20171107
  Receipt Date: 20171107
  Transmission Date: 20180321
  Serious: Yes (Hospitalization)
  Sender: FDA-Public Use
  Company Number: FR-SA-2017SA213944

PATIENT
  Age: 72 Year
  Sex: Female

DRUGS (2)
  1. LOVENOX [Suspect]
     Active Substance: ENOXAPARIN SODIUM
     Indication: PULMONARY EMBOLISM
     Route: 058
     Dates: start: 201709, end: 20171015
  2. KARDEGIC [Suspect]
     Active Substance: ASPIRIN DL-LYSINE
     Route: 048

REACTIONS (3)
  - Muscle haemorrhage [Recovering/Resolving]
  - Acute kidney injury [Recovering/Resolving]
  - Shock haemorrhagic [Recovered/Resolved]

NARRATIVE: CASE EVENT DATE: 20171015
